FAERS Safety Report 10867495 (Version 3)
Quarter: 2015Q2

REPORT INFORMATION
  Report Type: Spontaneous
  Country: US (occurrence: US)
  Receive Date: 20150225
  Receipt Date: 20150403
  Transmission Date: 20150821
  Serious: No
  Sender: FDA-Public Use
  Company Number: US-ASTRAZENECA-2014SE19822

PATIENT
  Age: 83 Year
  Sex: Male
  Weight: 127 kg

DRUGS (7)
  1. BYETTA [Suspect]
     Active Substance: EXENATIDE
     Indication: DIABETES MELLITUS
     Dosage: 250 MCG / 2.4 ML PEN, 2.4 ML BID
     Route: 058
     Dates: start: 20150128
  2. HUMALOG [Suspect]
     Active Substance: INSULIN LISPRO
     Dosage: 1DF:25UNITS BEFORE BREAKFAST, 15UNITS BEFORE LUNCH AND 25UNITS BEFORE DINNER
     Route: 058
  3. BYETTA [Suspect]
     Active Substance: EXENATIDE
     Indication: TYPE 2 DIABETES MELLITUS
     Dosage: 2.4 ML BID
     Route: 058
     Dates: start: 20150212
  4. BYETTA [Suspect]
     Active Substance: EXENATIDE
     Indication: TYPE 2 DIABETES MELLITUS
     Dosage: 250 MCG / 2.4 ML PEN, 2.4 ML BID
     Route: 058
     Dates: start: 20150128
  5. BYETTA [Suspect]
     Active Substance: EXENATIDE
     Indication: DIABETES MELLITUS
     Dosage: 2.4 ML BID
     Route: 058
     Dates: start: 20150212
  6. HUMALOG [Suspect]
     Active Substance: INSULIN LISPRO
     Dosage: 10-12 UNITS 3X A DAY
     Route: 065
  7. LEVEMIR [Suspect]
     Active Substance: INSULIN DETEMIR
     Route: 065

REACTIONS (8)
  - Dizziness [Unknown]
  - Balance disorder [Unknown]
  - Intentional product misuse [Unknown]
  - Gait disturbance [Unknown]
  - Drug dose omission [Unknown]
  - Blood glucose increased [Not Recovered/Not Resolved]
  - Depression [Unknown]
  - Somnolence [Unknown]

NARRATIVE: CASE EVENT DATE: 2013
